FAERS Safety Report 12766890 (Version 3)
Quarter: 2016Q4

REPORT INFORMATION
  Report Type: Report from Study
  Country: None (occurrence: NL)
  Receive Date: 20160921
  Receipt Date: 20161004
  Transmission Date: 20170207
  Serious: Yes (Hospitalization, Other)
  Sender: FDA-Public Use
  Company Number: NL-ABBVIE-16K-114-1728542-00

PATIENT
  Age: 72 Year
  Sex: Female

DRUGS (2)
  1. DUODOPA [Suspect]
     Active Substance: CARBIDOPA\LEVODOPA
     Indication: PARKINSON^S DISEASE
     Dosage: MD: 4.5, CD: 4.4, ED: 0.3
     Route: 050
     Dates: start: 20110309
  2. SINEMET [Concomitant]
     Active Substance: CARBIDOPA\LEVODOPA
     Indication: PRODUCT USED FOR UNKNOWN INDICATION

REACTIONS (11)
  - Fatigue [Not Recovered/Not Resolved]
  - Fall [Recovered/Resolved]
  - Lower limb fracture [Recovering/Resolving]
  - Daydreaming [Not Recovered/Not Resolved]
  - Dropped head syndrome [Recovering/Resolving]
  - On and off phenomenon [Recovering/Resolving]
  - Drug effect variable [Not Recovered/Not Resolved]
  - Delusion [Recovering/Resolving]
  - Hallucination [Recovering/Resolving]
  - Neck pain [Recovered/Resolved]
  - Incontinence [Not Recovered/Not Resolved]

NARRATIVE: CASE EVENT DATE: 20160908
